FAERS Safety Report 14826438 (Version 1)
Quarter: 2018Q2

REPORT INFORMATION
  Report Type: Spontaneous
  Country: CH (occurrence: CH)
  Receive Date: 20180430
  Receipt Date: 20180430
  Transmission Date: 20180711
  Serious: Yes (Other)
  Sender: FDA-Public Use
  Company Number: PHHY2018CH073755

PATIENT
  Sex: Female

DRUGS (1)
  1. RISPERIDONE SANDOZ [Suspect]
     Active Substance: RISPERIDONE
     Indication: PRODUCT USED FOR UNKNOWN INDICATION
     Dosage: 2 MG, UNK
     Route: 065
     Dates: start: 201707

REACTIONS (10)
  - Stress [Unknown]
  - Vomiting [Unknown]
  - Hypoacusis [Unknown]
  - Blood pressure abnormal [Unknown]
  - Fall [Unknown]
  - Rash [Unknown]
  - Alopecia [Unknown]
  - Head injury [Unknown]
  - Thyroid disorder [Unknown]
  - Weight increased [Unknown]
